FAERS Safety Report 25258745 (Version 3)
Quarter: 2025Q2

REPORT INFORMATION
  Report Type: Spontaneous
  Country: CN (occurrence: CN)
  Receive Date: 20250501
  Receipt Date: 20250522
  Transmission Date: 20250716
  Serious: Yes (Hospitalization)
  Sender: ESTEVE
  Company Number: CN-Esteve Pharmaceuticals SA-2175922

PATIENT
  Age: 58 Year
  Sex: Female

DRUGS (5)
  1. LYSODREN [Suspect]
     Active Substance: MITOTANE
     Indication: Adrenocortical carcinoma
     Dates: start: 20240321, end: 20250414
  2. LYSODREN [Suspect]
     Active Substance: MITOTANE
     Dates: end: 20250331
  3. ONDANSETRON [Concomitant]
     Active Substance: ONDANSETRON
  4. METOCLOPRAMIDE [Concomitant]
     Active Substance: METOCLOPRAMIDE
  5. LYSODREN [Suspect]
     Active Substance: MITOTANE
     Dates: start: 20250331

REACTIONS (3)
  - Nausea [Recovering/Resolving]
  - Blood pressure decreased [Recovered/Resolved]
  - Vomiting [Recovering/Resolving]

NARRATIVE: CASE EVENT DATE: 20250413
